FAERS Safety Report 13633893 (Version 1)
Quarter: 2017Q2

REPORT INFORMATION
  Report Type: Spontaneous
  Country: US (occurrence: US)
  Receive Date: 20170609
  Receipt Date: 20170609
  Transmission Date: 20170830
  Serious: Yes (Hospitalization, Other)
  Sender: FDA-Public Use
  Company Number: US-AMGEN-USASP2017086126

PATIENT
  Age: 39 Year
  Sex: Male

DRUGS (1)
  1. EPOGEN [Suspect]
     Active Substance: ERYTHROPOIETIN
     Indication: CHRONIC KIDNEY DISEASE
     Dosage: 20000 UNIT, UNK
     Route: 065

REACTIONS (2)
  - Aplasia pure red cell [Unknown]
  - Renal transplant [Unknown]

NARRATIVE: CASE EVENT DATE: 2008
